FAERS Safety Report 17477035 (Version 2)
Quarter: 2021Q4

REPORT INFORMATION
  Report Type: Report from Study
  Country: CA (occurrence: CA)
  Receive Date: 20200228
  Receipt Date: 20211215
  Transmission Date: 20220303
  Serious: Yes (Other)
  Sender: FDA-Public Use
  Company Number: CA-JNJFOC-20190504212

PATIENT
  Age: 46 Year
  Sex: Female
  Weight: 59.9 kg

DRUGS (2)
  1. STELARA [Suspect]
     Active Substance: USTEKINUMAB
     Indication: Crohn^s disease
     Route: 058
     Dates: start: 20190308
  2. STELARA [Suspect]
     Active Substance: USTEKINUMAB
     Indication: Ankylosing spondylitis
     Dosage: PHYSICIAN REQUESTING FOR IV RELOAD DOSE
     Route: 058

REACTIONS (9)
  - Ankylosing spondylitis [Recovered/Resolved]
  - Crohn^s disease [Not Recovered/Not Resolved]
  - Infusion related reaction [Unknown]
  - Vaginal infection [Not Recovered/Not Resolved]
  - Asthenia [Unknown]
  - Myalgia [Unknown]
  - Headache [Unknown]
  - Sleep disorder [Unknown]
  - Therapeutic response decreased [Unknown]

NARRATIVE: CASE EVENT DATE: 20190101
